FAERS Safety Report 7108876-4 (Version None)
Quarter: 2010Q4

REPORT INFORMATION
  Report Type: 
  Country: None (occurrence: None)
  Receive Date: 20101117
  Receipt Date: 20101109
  Transmission Date: 20110411
  Serious: Yes (Other)
  Sender: FDA-Public Use
  Company Number: TW-ALLERGAN-1014495US

PATIENT
  Age: 57 Year
  Sex: Female

DRUGS (2)
  1. BOTULINUM TOXIN TYPE A [Suspect]
     Indication: SKIN WRINKLING
  2. AQUAMID [Suspect]

REACTIONS (11)
  - CELLULITIS [None]
  - ERYTHEMA [None]
  - EYELID PTOSIS [None]
  - FACE OEDEMA [None]
  - HEADACHE [None]
  - IIIRD NERVE PARALYSIS [None]
  - NAUSEA [None]
  - OPTIC ISCHAEMIC NEUROPATHY [None]
  - RASH PUSTULAR [None]
  - VISUAL FIELD DEFECT [None]
  - VOMITING [None]
